FAERS Safety Report 7771534-7 (Version None)
Quarter: 2011Q3

REPORT INFORMATION
  Report Type: 
  Country: None (occurrence: None)
  Receive Date: 20110922
  Receipt Date: 20100915
  Transmission Date: 20111222
  Serious: No
  Sender: FDA-Public Use
  Company Number: US-ASTRAZENECA-2007UW09666

PATIENT
  Age: 35 Year
  Sex: Female
  Weight: 84.8 kg

DRUGS (22)
  1. SEROQUEL [Suspect]
     Dosage: 25MG-150MG DAILY
     Route: 048
     Dates: start: 20051031
  2. TRAZODONE HYDROCHLORIDE [Concomitant]
     Indication: INSOMNIA
     Route: 048
     Dates: start: 20051031
  3. WELLBUTRIN [Concomitant]
     Dosage: 150MG -300MG DAILY
     Route: 048
     Dates: start: 20051031
  4. SEROQUEL [Suspect]
     Indication: DEPRESSION
     Dosage: 25-100 MG
     Route: 048
     Dates: start: 20051031, end: 20060501
  5. WELLBUTRIN [Concomitant]
     Dates: start: 20000101, end: 20070101
  6. LEXAPRO [Concomitant]
     Indication: DEPRESSION
     Dosage: 10MG-20MG DAILY
     Route: 048
     Dates: start: 20051031
  7. SEROQUEL [Suspect]
     Indication: BIPOLAR DISORDER
     Dosage: 25-100 MG
     Route: 048
     Dates: start: 20051031, end: 20060501
  8. RISPERDAL [Concomitant]
     Indication: DEPRESSION
     Route: 048
     Dates: start: 20060419
  9. COREG [Concomitant]
     Route: 048
     Dates: start: 20060921
  10. XANAX [Concomitant]
     Dates: start: 20000101, end: 20060101
  11. LITHIUM [Concomitant]
     Indication: BIPOLAR DISORDER
  12. PROTONIX [Concomitant]
     Route: 048
     Dates: start: 20051031
  13. TEGRETOL [Concomitant]
     Route: 048
     Dates: start: 20060919
  14. XANAX [Concomitant]
     Dosage: 0.5MG -1MG DAILY
     Route: 048
     Dates: start: 20060919
  15. SEROQUEL [Suspect]
     Dosage: 25MG-150MG DAILY
     Route: 048
     Dates: start: 20051031
  16. RISPERDAL [Concomitant]
     Indication: BIPOLAR DISORDER
     Route: 048
     Dates: start: 20060419
  17. TOPAMAX [Concomitant]
     Dosage: 50MG-75MG DAILY
     Route: 048
     Dates: start: 20051031
  18. AMANTADINE HCL [Concomitant]
     Dosage: 100MG-200MG DAILY
     Route: 048
     Dates: start: 20051031
  19. DEPAKOTE [Concomitant]
     Route: 048
     Dates: start: 20070908
  20. SEROQUEL [Suspect]
     Indication: SLEEP DISORDER
     Dosage: 25-100 MG
     Route: 048
     Dates: start: 20051031, end: 20060501
  21. SEROQUEL [Suspect]
     Dosage: 25MG-150MG DAILY
     Route: 048
     Dates: start: 20051031
  22. VALIUM [Concomitant]
     Indication: DEPRESSION

REACTIONS (3)
  - PELVIC PAIN [None]
  - MENORRHAGIA [None]
  - TYPE 2 DIABETES MELLITUS [None]
